FAERS Safety Report 8139593-X (Version None)
Quarter: 2012Q1

REPORT INFORMATION
  Report Type: 
  Country: None (occurrence: None)
  Receive Date: 20120215
  Receipt Date: 20120203
  Transmission Date: 20120608
  Serious: Yes (Other)
  Sender: FDA-Public Use
  Company Number: PHHY2011US23109

PATIENT
  Sex: Female

DRUGS (3)
  1. TASIGNA [Suspect]
     Indication: CHRONIC MYELOID LEUKAEMIA
     Dosage: 400 MG, BID
     Route: 048
     Dates: start: 20110304, end: 20110325
  2. TASIGNA [Suspect]
     Dosage: 400 MG, DAILY
     Route: 048
     Dates: start: 20110325, end: 20110328
  3. TASIGNA [Suspect]
     Dosage: 200 MG, BID
     Route: 048
     Dates: start: 20110331

REACTIONS (16)
  - NECK PAIN [None]
  - DIZZINESS [None]
  - HEADACHE [None]
  - PAIN [None]
  - ALOPECIA [None]
  - PALPITATIONS [None]
  - BONE PAIN [None]
  - LOSS OF CONSCIOUSNESS [None]
  - CHILLS [None]
  - EAR HAEMORRHAGE [None]
  - THROMBOCYTOPENIA [None]
  - CONSTIPATION [None]
  - RASH GENERALISED [None]
  - NEUTROPENIA [None]
  - ANAEMIA [None]
  - PRURITUS [None]
